FAERS Safety Report 6817960-1 (Version None)
Quarter: 2010Q3

REPORT INFORMATION
  Report Type: 
  Country: None (occurrence: None)
  Receive Date: 20100706
  Receipt Date: 20100625
  Transmission Date: 20110219
  Serious: Yes (Hospitalization, Other)
  Sender: FDA-Public Use
  Company Number: US-AMGEN-QUU420676

PATIENT
  Sex: Female

DRUGS (1)
  1. ENBREL [Suspect]
     Indication: RHEUMATOID ARTHRITIS
     Route: 058
     Dates: start: 20070315, end: 20090101

REACTIONS (5)
  - ARTHROPATHY [None]
  - DRUG DOSE OMISSION [None]
  - FALL [None]
  - FRACTURE MALUNION [None]
  - HIP FRACTURE [None]
